FAERS Safety Report 7471613-8 (Version None)
Quarter: 2011Q2

REPORT INFORMATION
  Report Type: 
  Country: None (occurrence: None)
  Receive Date: 20110502
  Receipt Date: 20110422
  Transmission Date: 20111010
  Serious: Yes (Hospitalization, Other)
  Sender: FDA-Public Use
  Company Number: VER-2011-00359

PATIENT
  Age: 75 Year
  Sex: Male
  Weight: 84.369 kg

DRUGS (2)
  1. CYCLOSET [Suspect]
     Indication: DIABETES MELLITUS
     Dosage: 6.4 MG (3.2 MG, 2 IN 1 D), ORAL
     Route: 048
     Dates: start: 20110301, end: 20110422
  2. CYCLOSET [Suspect]
     Indication: DIABETES MELLITUS
     Dosage: 6.4 MG (3.2 MG, 2 IN 1 D), ORAL
     Route: 048
     Dates: start: 20110423

REACTIONS (3)
  - DEVICE RELATED INFECTION [None]
  - CARDIAC PACEMAKER REPLACEMENT [None]
  - PSYCHOTIC DISORDER [None]
